FAERS Safety Report 13690300 (Version 1)
Quarter: 2017Q2

REPORT INFORMATION
  Report Type: Spontaneous
  Country: US (occurrence: US)
  Receive Date: 20170626
  Receipt Date: 20170626
  Transmission Date: 20170830
  Serious: No
  Sender: FDA-Public Use
  Company Number: US-BAYER-2017-122356

PATIENT
  Age: 70 Year
  Sex: Male
  Weight: 76.96 kg

DRUGS (1)
  1. MIRALAX [Suspect]
     Active Substance: POLYETHYLENE GLYCOL 3350
     Indication: GASTROINTESTINAL DISORDER
     Dosage: HALF A DOSE DOSE
     Route: 048
     Dates: start: 2000

REACTIONS (4)
  - Incorrect dose administered [Unknown]
  - Wrong technique in product usage process [Unknown]
  - Product use issue [Unknown]
  - Off label use [Unknown]

NARRATIVE: CASE EVENT DATE: 2000
